FAERS Safety Report 5709118-4 (Version None)
Quarter: 2008Q2

REPORT INFORMATION
  Report Type: 
  Country: None (occurrence: None)
  Receive Date: 20080416
  Receipt Date: 20080416
  Transmission Date: 20081010
  Serious: Yes (Other)
  Sender: FDA-Public Use
  Company Number: None

PATIENT
  Sex: Female
  Weight: 37.195 kg

DRUGS (1)
  1. SINGULAIR [Suspect]
     Indication: HYPERSENSITIVITY
     Dosage: 1 TABLET ONCE DAILY PO
     Route: 048
     Dates: start: 20070815, end: 20080328

REACTIONS (10)
  - ABNORMAL BEHAVIOUR [None]
  - ANHEDONIA [None]
  - DEPRESSION [None]
  - EATING DISORDER [None]
  - GENERAL PHYSICAL HEALTH DETERIORATION [None]
  - GROWTH RETARDATION [None]
  - INSOMNIA [None]
  - MENTAL DISORDER [None]
  - SOCIAL AVOIDANT BEHAVIOUR [None]
  - WEIGHT DECREASED [None]
